FAERS Safety Report 12834547 (Version 2)
Quarter: 2016Q4

REPORT INFORMATION
  Report Type: Spontaneous
  Country: FR (occurrence: FR)
  Receive Date: 20161010
  Receipt Date: 20161121
  Transmission Date: 20170207
  Serious: Yes (Life-Threatening)
  Sender: FDA-Public Use
  Company Number: FR-PFIZER INC-2016459555

PATIENT
  Age: 66 Year
  Sex: Female

DRUGS (14)
  1. HYDROXYZINE MYLAN [Suspect]
     Active Substance: HYDROXYZINE HYDROCHLORIDE
     Dosage: UNK, AS NEEDED
     Route: 048
     Dates: end: 20160718
  2. SULFARLEM [Concomitant]
     Active Substance: ANETHOLTRITHION
  3. COLCHICINE OPOCALCIUM [Suspect]
     Active Substance: COLCHICINE
     Indication: ARTHRITIS
     Dosage: UNK
     Route: 048
     Dates: start: 20160630
  4. RISPERIDONE MYLAN [Suspect]
     Active Substance: RISPERIDONE
     Dosage: 2 MG, 1X/DAY
     Route: 048
     Dates: end: 20160718
  5. VALIUM [Suspect]
     Active Substance: DIAZEPAM
     Dosage: 16 DF (DROPS), 1X/DAY
     Route: 048
     Dates: end: 20160718
  6. THERALENE [Concomitant]
     Active Substance: TRIMEPRAZINE
  7. COLCHICINE OPOCALCIUM [Suspect]
     Active Substance: COLCHICINE
     Dosage: 2 MG, 3X/DAY
     Route: 048
     Dates: start: 20160704, end: 20160718
  8. OXCARBAZEPINE MYLAN 300 MG, COMPRIM? PELLICUL? [Suspect]
     Active Substance: OXCARBAZEPINE
     Dosage: 300 MG, 1X/DAY
     Route: 048
     Dates: end: 20160718
  9. TOPALGIC [Suspect]
     Active Substance: TRAMADOL
     Dosage: 100 KIU, 3X/DAY
     Route: 048
     Dates: end: 20160718
  10. MILNACIPRAN ARROW [Suspect]
     Active Substance: MILNACIPRAN HYDROCHLORIDE
     Dosage: 50 MG, 1X/DAY
     Route: 048
     Dates: end: 20160718
  11. PARACETAMOL [Concomitant]
     Active Substance: ACETAMINOPHEN
  12. KARDEGIC [Concomitant]
     Active Substance: ASPIRIN LYSINE
  13. FRAGMINE [Suspect]
     Active Substance: DALTEPARIN SODIUM
     Dosage: 5000 IU, 1X/DAY
     Route: 058
     Dates: start: 20160704, end: 20160718
  14. DOMPERIDONE ARROW /00498201/ [Suspect]
     Active Substance: DOMPERIDONE
     Dosage: 10 MG, 3X/DAY
     Route: 048
     Dates: end: 20160718

REACTIONS (8)
  - Diarrhoea [Recovered/Resolved]
  - Anaemia [Recovered/Resolved]
  - Vomiting [Recovered/Resolved]
  - Depressed level of consciousness [Recovered/Resolved]
  - Red blood cell count abnormal [Recovered/Resolved]
  - Hypoprothrombinaemia [Unknown]
  - Acute kidney injury [Recovered/Resolved]
  - Hepatic enzyme increased [Recovered/Resolved]

NARRATIVE: CASE EVENT DATE: 201607
